FAERS Safety Report 15271906 (Version 1)
Quarter: 2018Q3

REPORT INFORMATION
  Report Type: Spontaneous
  Country: ES (occurrence: ES)
  Receive Date: 20180813
  Receipt Date: 20180813
  Transmission Date: 20181010
  Serious: Yes (Hospitalization)
  Sender: FDA-Public Use
  Company Number: PHHY2018ES069787

PATIENT
  Age: 37 Year
  Sex: Male

DRUGS (2)
  1. DICLOFENACO [Concomitant]
     Active Substance: DICLOFENAC
     Indication: PAIN
     Dosage: UNK
     Route: 030
     Dates: start: 20160610, end: 20160610
  2. IBUPROFENO [Suspect]
     Active Substance: IBUPROFEN
     Indication: HEADACHE
     Dosage: 1200 MG, QD
     Route: 048
     Dates: start: 20160630, end: 20160701

REACTIONS (1)
  - Enteritis [Recovered/Resolved]

NARRATIVE: CASE EVENT DATE: 20160702
